FAERS Safety Report 16040206 (Version 1)
Quarter: 2019Q2

REPORT INFORMATION
  Report Type: Spontaneous
  Country: US (occurrence: US)
  Receive Date: 20190305
  Receipt Date: 20190305
  Transmission Date: 20190711
  Serious: Yes (Disabling)
  Sender: FDA-Public Use
  Company Number: None

PATIENT
  Age: 45 Year
  Sex: Female
  Weight: 132.75 kg

DRUGS (12)
  1. WELLBUTRIN [Concomitant]
     Active Substance: BUPROPION HYDROCHLORIDE
  2. PRAVOSTIN [Concomitant]
  3. AMPYRA [Concomitant]
     Active Substance: DALFAMPRIDINE
  4. CLINDAMYCIN 1% SOLN [Concomitant]
  5. AJOVY [Suspect]
     Active Substance: FREMANEZUMAB-VFRM
     Indication: MIGRAINE
     Dosage: ?          QUANTITY:1 INJECTION(S);OTHER FREQUENCY:MONTHLY;?
     Route: 058
     Dates: start: 20190207, end: 20190207
  6. TRINTELLIX [Concomitant]
     Active Substance: VORTIOXETINE HYDROBROMIDE
  7. LASIX [Concomitant]
     Active Substance: FUROSEMIDE
  8. DEPO-PROVERA [Concomitant]
     Active Substance: MEDROXYPROGESTERONE ACETATE
  9. FLEXERIL [Concomitant]
     Active Substance: CYCLOBENZAPRINE HYDROCHLORIDE
  10. TYLENOL [Concomitant]
     Active Substance: ACETAMINOPHEN
  11. CLONAZEPAM. [Concomitant]
     Active Substance: CLONAZEPAM
  12. TECFIDERA [Concomitant]
     Active Substance: DIMETHYL FUMARATE

REACTIONS (7)
  - Tinnitus [None]
  - Pyrexia [None]
  - Nausea [None]
  - Fatigue [None]
  - Vomiting [None]
  - Herpes zoster [None]
  - Dyspepsia [None]

NARRATIVE: CASE EVENT DATE: 20190207
